FAERS Safety Report 8578469-0 (Version None)
Quarter: 2012Q3

REPORT INFORMATION
  Report Type: 
  Country: None (occurrence: None)
  Receive Date: 20120808
  Receipt Date: 20120719
  Transmission Date: 20120928
  Serious: No
  Sender: FDA-Public Use
  Company Number: US-JNJFOC-20120711256

PATIENT
  Age: 12 Year
  Sex: Male

DRUGS (2)
  1. INVEGA [Suspect]
     Indication: AFFECTIVE DISORDER
     Route: 048
     Dates: start: 20090101, end: 20120101
  2. CONCERTA [Concomitant]
     Indication: ATTENTION DEFICIT/HYPERACTIVITY DISORDER
     Route: 048
     Dates: start: 20070101

REACTIONS (7)
  - DRUG INEFFECTIVE [None]
  - PAIN IN EXTREMITY [None]
  - IRRITABILITY [None]
  - SWELLING FACE [None]
  - SWOLLEN TONGUE [None]
  - VISION BLURRED [None]
  - HEADACHE [None]
